FAERS Safety Report 7833268-X (Version None)
Quarter: 2011Q4

REPORT INFORMATION
  Report Type: 
  Country: None (occurrence: None)
  Receive Date: 20111024
  Receipt Date: 20111018
  Transmission Date: 20120403
  Serious: No
  Sender: FDA-Public Use
  Company Number: US-JNJFOC-20111002584

PATIENT
  Sex: Female
  Weight: 65.77 kg

DRUGS (2)
  1. FENTANYL-100 [Suspect]
     Indication: ARTHRITIS
     Dosage: EVERY 60 HOURS
     Route: 062
  2. FENTANYL-100 [Suspect]
     Indication: PAIN
     Dosage: EVERY 60 HOURS
     Route: 062

REACTIONS (5)
  - WITHDRAWAL SYNDROME [None]
  - DRUG PRESCRIBING ERROR [None]
  - MUSCLE TWITCHING [None]
  - INAPPROPRIATE SCHEDULE OF DRUG ADMINISTRATION [None]
  - HOT FLUSH [None]
